FAERS Safety Report 15687351 (Version 1)
Quarter: 2018Q4

REPORT INFORMATION
  Report Type: Spontaneous
  Country: GB (occurrence: GB)
  Receive Date: 20181205
  Receipt Date: 20181205
  Transmission Date: 20190205
  Serious: Yes (Other)
  Sender: FDA-Public Use
  Company Number: GB-ACCORD-094605

PATIENT
  Age: 47 Year
  Sex: Female
  Weight: 79 kg

DRUGS (2)
  1. SERTRALINE [Suspect]
     Active Substance: SERTRALINE HYDROCHLORIDE
     Indication: PRODUCT USED FOR UNKNOWN INDICATION
     Route: 048
     Dates: start: 20171213, end: 20171215
  2. HYDROXOCOBALAMIN/HYDROXOCOBALAMIN ACETATE/HYDROXOCOBALAMIN HYDROCHLORIDE [Concomitant]
     Dosage: USE AS DIRECTED
     Dates: start: 20171206, end: 20171207

REACTIONS (3)
  - Feeling abnormal [Unknown]
  - Mental status changes [Recovered/Resolved]
  - Mood altered [Unknown]

NARRATIVE: CASE EVENT DATE: 20171213
